FAERS Safety Report 10318459 (Version 2)
Quarter: 2015Q1

REPORT INFORMATION
  Report Type: Other
  Country: US (occurrence: US)
  Receive Date: 20140719
  Receipt Date: 20150319
  Transmission Date: 20150720
  Serious: No
  Sender: FDA-Public Use
  Company Number: US-GSKPPD-2014GSK009254

PATIENT
  Sex: Male

DRUGS (1)
  1. AVANDIA [Suspect]
     Active Substance: ROSIGLITAZONE MALEATE
     Indication: DIABETES MELLITUS
     Dosage: DATES OF AVANDIA USE COULD NOT BE CONFIRMED IN RECORDS REVIEWED.
     Route: 048

REACTIONS (7)
  - Dyspnoea [Unknown]
  - Oedema [Unknown]
  - Chest pain [Unknown]
  - Cardiomegaly [Unknown]
  - Arrhythmia [Unknown]
  - Hypertension [Unknown]
  - Cardiac disorder [Unknown]
